FAERS Safety Report 6921644-9 (Version None)
Quarter: 2010Q3

REPORT INFORMATION
  Report Type: 
  Country: None (occurrence: None)
  Receive Date: 20100812
  Receipt Date: 20100802
  Transmission Date: 20110219
  Serious: Yes (Hospitalization)
  Sender: FDA-Public Use
  Company Number: US-ELI_LILLY_AND_COMPANY-US201004006959

PATIENT
  Sex: Female

DRUGS (4)
  1. SYMBYAX [Suspect]
     Indication: BIPOLAR DISORDER
     Dosage: 1 D/F, UNKNOWN
     Route: 065
     Dates: start: 20100407, end: 20100409
  2. ALPRAZOLAM [Concomitant]
  3. ALAVERT [Concomitant]
  4. IBUPROFEN [Concomitant]

REACTIONS (1)
  - ANGIOEDEMA [None]
